FAERS Safety Report 8549646-X (Version None)
Quarter: 2012Q3

REPORT INFORMATION
  Report Type: 
  Country: None (occurrence: None)
  Receive Date: 20120730
  Receipt Date: 20090210
  Transmission Date: 20120928
  Serious: Yes (Hospitalization)
  Sender: FDA-Public Use
  Company Number: BR-ROCHE-1093167

PATIENT
  Age: 60 Year
  Sex: Female
  Weight: 57 kg

DRUGS (1)
  1. BONIVA [Suspect]
     Indication: OSTEOPOROSIS
     Route: 048

REACTIONS (2)
  - ARTHRITIS [None]
  - OSTEOARTHRITIS [None]
